FAERS Safety Report 15763258 (Version 3)
Quarter: 2019Q1

REPORT INFORMATION
  Report Type: Report from Study
  Country: US (occurrence: US)
  Receive Date: 20181227
  Receipt Date: 20190212
  Transmission Date: 20190417
  Serious: Yes (Hospitalization)
  Sender: FDA-Public Use
  Company Number: US-ACTELION-A-NJ2018-184069

PATIENT
  Age: 47 Year
  Sex: Female
  Weight: 72.56 kg

DRUGS (3)
  1. ADCIRCA [Concomitant]
     Active Substance: TADALAFIL
  2. UPTRAVI [Suspect]
     Active Substance: SELEXIPAG
     Indication: PULMONARY ARTERIAL HYPERTENSION
     Dosage: 1000 MCG, BID
     Route: 048
  3. LETAIRIS [Concomitant]
     Active Substance: AMBRISENTAN

REACTIONS (7)
  - Therapy change [Unknown]
  - Extra dose administered [Unknown]
  - Hypertension [Unknown]
  - Pulmonary hypertension [Unknown]
  - Oxygen saturation abnormal [Unknown]
  - Drug ineffective [Unknown]
  - Dyspnoea [Unknown]
